FAERS Safety Report 21293296 (Version 1)
Quarter: 2022Q3

REPORT INFORMATION
  Report Type: Spontaneous
  Country: FR (occurrence: FR)
  Receive Date: 20220905
  Receipt Date: 20220905
  Transmission Date: 20221026
  Serious: Yes (Hospitalization)
  Sender: FDA-Public Use
  Company Number: None

PATIENT
  Age: 61 Year
  Sex: Female

DRUGS (9)
  1. QUETIAPINE FUMARATE [Suspect]
     Active Substance: QUETIAPINE FUMARATE
     Indication: Psychotic disorder
     Dates: start: 20220510, end: 20220516
  2. ZOPICLONE [Concomitant]
     Active Substance: ZOPICLONE
     Dates: end: 20220516
  3. ACETAMINOPHEN [Concomitant]
     Active Substance: ACETAMINOPHEN
  4. POLYETHYLENE GLYCOLS [Concomitant]
     Active Substance: POLYETHYLENE GLYCOLS
     Dates: end: 20220516
  5. LOXAPINE [Concomitant]
     Active Substance: LOXAPINE
     Dosage: 50 MG
     Dates: end: 20220516
  6. VALIUM [Concomitant]
     Active Substance: DIAZEPAM
     Dosage: 1 PERCENT, ORAL SOLUTION IN DROPS
     Dates: end: 20220516
  7. METFORMIN [Concomitant]
     Active Substance: METFORMIN HYDROCHLORIDE
     Indication: Type 2 diabetes mellitus
     Dates: end: 20220516
  8. AMLODIPINE [Concomitant]
     Active Substance: AMLODIPINE BESYLATE
     Dates: end: 20220516
  9. ATORVASTATIN [Concomitant]
     Active Substance: ATORVASTATIN
     Dates: end: 20220516

REACTIONS (2)
  - Acute kidney injury [Recovered/Resolved]
  - Urinary retention [Recovered/Resolved]

NARRATIVE: CASE EVENT DATE: 20220515
